FAERS Safety Report 5049468-0 (Version None)
Quarter: 2006Q3

REPORT INFORMATION
  Report Type: 
  Country: None (occurrence: None)
  Receive Date: 20060711
  Receipt Date: 20060711
  Transmission Date: 20061208
  Serious: Yes (Disabling)
  Sender: FDA-Public Use
  Company Number: None

PATIENT
  Sex: Male
  Weight: 116 kg

DRUGS (9)
  1. LITHIUM CARBONATE [Suspect]
     Indication: BIPOLAR DISORDER
     Dosage: 300MG/600MG DAILY PO
     Route: 048
     Dates: start: 20060317, end: 20060504
  2. BETHANECHOL [Suspect]
     Indication: INCONTINENCE
     Dosage: 50MG TID PRN PO
     Route: 048
     Dates: start: 20060411, end: 20060506
  3. TRAZODONE HCL [Concomitant]
  4. PROZAC [Concomitant]
  5. BUPROPION HCL [Concomitant]
  6. NEURONTIN [Concomitant]
  7. VALPROIC ACID [Concomitant]
  8. TEMAZEPAM [Concomitant]
  9. CLONAZEPAM [Concomitant]

REACTIONS (4)
  - DIABETES INSIPIDUS [None]
  - INCONTINENCE [None]
  - MICTURITION URGENCY [None]
  - NOCTURIA [None]
